FAERS Safety Report 8228437-3 (Version None)
Quarter: 2012Q1

REPORT INFORMATION
  Report Type: 
  Country: None (occurrence: None)
  Receive Date: 20120322
  Receipt Date: 20110716
  Transmission Date: 20120608
  Serious: Yes (Hospitalization)
  Sender: FDA-Public Use
  Company Number: US-BRISTOL-MYERS SQUIBB COMPANY-15870967

PATIENT
  Age: 71 Year
  Sex: Male

DRUGS (2)
  1. IRINOTECAN HCL [Suspect]
  2. ERBITUX [Suspect]
     Indication: RECTAL CANCER
     Dosage: 09C00655B,EXP DT:FEB2013,10C00198D,10C00198C EXP DT:JUN13,09C00653A,09C00654C EXP DT:FEB13 NO INF:4
     Route: 042
     Dates: start: 20110318, end: 20110616

REACTIONS (1)
  - SEPSIS [None]
